FAERS Safety Report 8956198 (Version 1)
Quarter: 2012Q4

REPORT INFORMATION
  Report Type: 
  Country: DE (occurrence: DE)
  Receive Date: 20121210
  Receipt Date: 20121210
  Transmission Date: 20130627
  Serious: Yes (Hospitalization)
  Sender: FDA-Public Use
  Company Number: DE-ELI_LILLY_AND_COMPANY-DE201211007977

PATIENT
  Age: 78 Year
  Sex: Male

DRUGS (6)
  1. FORSTEO [Suspect]
     Indication: OSTEOPOROSIS
     Dosage: UNK, qd
     Route: 058
     Dates: start: 20110609
  2. INSULIN [Concomitant]
     Dosage: UNK, unknown
     Route: 065
  3. CALCIMAGON D3 [Concomitant]
     Dosage: 800 IU, unknown
     Route: 065
  4. VIGANTOLETTEN [Concomitant]
     Dosage: 10000 IU, qd
     Route: 065
  5. CORTISONE [Concomitant]
     Dosage: 10 mg, qd
     Route: 065
     Dates: start: 1999
  6. BLOPRESS [Concomitant]
     Dosage: 2 mg, unknown
     Route: 065

REACTIONS (2)
  - Rib fracture [Not Recovered/Not Resolved]
  - Fall [Recovered/Resolved]
